FAERS Safety Report 7641145-2 (Version None)
Quarter: 2011Q3

REPORT INFORMATION
  Report Type: 
  Country: None (occurrence: None)
  Receive Date: 20110728
  Receipt Date: 20110714
  Transmission Date: 20111222
  Serious: Yes (Other)
  Sender: FDA-Public Use
  Company Number: PHHY2011US63868

PATIENT
  Sex: Female

DRUGS (4)
  1. ACTONEL [Suspect]
  2. DIOVAN [Suspect]
     Dosage: 160 MG (DAILY), UNK
  3. AMLODIPINE [Suspect]
  4. AMITRIPTYLINE HCL [Concomitant]
     Dosage: 10 MG (AT NIGHT), UNK

REACTIONS (3)
  - BLOOD PRESSURE INCREASED [None]
  - AORTIC ANEURYSM [None]
  - HYPOKINESIA [None]
